FAERS Safety Report 11130575 (Version 1)
Quarter: 2015Q2

REPORT INFORMATION
  Report Type: Spontaneous
  Country: US (occurrence: None)
  Receive Date: 20150521
  Receipt Date: 20150521
  Transmission Date: 20150821
  Serious: Yes (Death)
  Sender: FDA-Public Use
  Company Number: None

PATIENT
  Age: 46 Year
  Sex: Female

DRUGS (1)
  1. SYPRINE [Suspect]
     Active Substance: TRIENTINE HYDROCHLORIDE
     Indication: COPPER METABOLISM DISORDER
     Route: 048
     Dates: start: 20150424, end: 20150518

REACTIONS (1)
  - Death [None]

NARRATIVE: CASE EVENT DATE: 20150518
